FAERS Safety Report 8800990 (Version 1)
Quarter: 2012Q4

REPORT INFORMATION
  Report Type: 
  Country: US (occurrence: US)
  Receive Date: 20120921
  Receipt Date: 20120921
  Transmission Date: 20130627
  Serious: Yes (Hospitalization)
  Sender: FDA-Public Use
  Company Number: US-GLAXOSMITHKLINE-A0782969A

PATIENT
  Age: 59 Year
  Sex: Male
  Weight: 97.7 kg

DRUGS (11)
  1. AVANDIA [Suspect]
     Indication: DIABETES MELLITUS
     Dosage: 4MG Twice per day
     Route: 048
     Dates: start: 200203, end: 200703
  2. METFORMIN [Concomitant]
  3. METOPROLOL [Concomitant]
  4. ZOCOR [Concomitant]
  5. CATAPRES [Concomitant]
  6. DIOVAN [Concomitant]
  7. FLOMAX [Concomitant]
  8. LOTREL [Concomitant]
  9. NORVASC [Concomitant]
  10. NORCO [Concomitant]
  11. LOTREL [Concomitant]

REACTIONS (3)
  - Cerebrovascular accident [Not Recovered/Not Resolved]
  - Brain injury [Unknown]
  - Convulsion [Unknown]
